FAERS Safety Report 6614003-X (Version None)
Quarter: 2010Q1

REPORT INFORMATION
  Report Type: 
  Country: None (occurrence: None)
  Receive Date: 20100304
  Receipt Date: 20100225
  Transmission Date: 20100710
  Serious: Yes (Hospitalization)
  Sender: FDA-Public Use
  Company Number: US-ABBOTT-10P-163-0628861-00

PATIENT
  Sex: Male

DRUGS (6)
  1. TRILIPIX [Suspect]
     Indication: HYPERLIPIDAEMIA
     Dates: start: 20090101, end: 20091001
  2. CRESTOR [Suspect]
     Indication: HYPERLIPIDAEMIA
     Dates: start: 20091001
  3. CRESTOR [Concomitant]
     Indication: DRUG USE FOR UNKNOWN INDICATION
  4. TRICOR [Concomitant]
     Indication: DRUG USE FOR UNKNOWN INDICATION
  5. TRICOR [Concomitant]
  6. UNKNOWN THYROID MEDICATION [Concomitant]
     Indication: HYPERLIPIDAEMIA

REACTIONS (1)
  - HEPATIC FAILURE [None]
